FAERS Safety Report 5007238-3 (Version None)
Quarter: 2006Q1

REPORT INFORMATION
  Report Type: 
  Country: None (occurrence: None)
  Receive Date: 20060320
  Receipt Date: 20050304
  Transmission Date: 20060701
  Serious: Yes (Life-Threatening)
  Sender: FDA-Public Use
  Company Number: 2005-03-0450

PATIENT
  Age: 46 Year
  Sex: Male
  Weight: 86.1834 kg

DRUGS (5)
  1. PEG-INTRON [Suspect]
     Indication: HEPATITIS C
     Dosage: 150 MCG QWK, SUBCUTANEOUS
     Route: 058
     Dates: start: 20050128, end: 20050320
  2. RIBAVIRIN [Suspect]
     Indication: HEPATITIS C
     Dosage: 1200 MG QD, ORAL
     Route: 048
     Dates: start: 20050128, end: 20050320
  3. INSULIN [Concomitant]
  4. WELLBUTRIN [Concomitant]
  5. ASPIRIN [Concomitant]

REACTIONS (2)
  - BIPOLAR DISORDER [None]
  - PSYCHOTIC DISORDER [None]
